FAERS Safety Report 25854248 (Version 2)
Quarter: 2025Q4

REPORT INFORMATION
  Report Type: Report from Study
  Country: US (occurrence: US)
  Receive Date: 20250926
  Receipt Date: 20251003
  Transmission Date: 20260117
  Serious: No
  Sender: BOEHRINGER INGELHEIM
  Company Number: US-BoehringerIngelheim-2025-BI-098170

PATIENT
  Age: 60 Year
  Sex: Female

DRUGS (2)
  1. OFEV [Suspect]
     Active Substance: NINTEDANIB
     Indication: Idiopathic pulmonary fibrosis
     Dates: start: 202509
  2. OFEV [Suspect]
     Active Substance: NINTEDANIB

REACTIONS (4)
  - Abdominal pain [Recovered/Resolved]
  - Nausea [Recovered/Resolved]
  - Gastrointestinal motility disorder [Recovered/Resolved]
  - Weight decreased [Unknown]

NARRATIVE: CASE EVENT DATE: 20250901
